FAERS Safety Report 5615453-0 (Version None)
Quarter: 2008Q1

REPORT INFORMATION
  Report Type: 
  Country: None (occurrence: None)
  Receive Date: 20080204
  Receipt Date: 20080204
  Transmission Date: 20080703
  Serious: Yes (Other)
  Sender: FDA-Public Use
  Company Number: None

PATIENT
  Age: 40 Year
  Sex: Female
  Weight: 63.05 kg

DRUGS (4)
  1. HEPARIN SODIUM [Suspect]
     Indication: ANTICOAGULANT THERAPY
     Dosage: 10,000 USP UNITS 1 IV
     Route: 042
     Dates: start: 20080104, end: 20080104
  2. HEPARIN SODIUM [Suspect]
     Indication: PHOTOPHERESIS
     Dosage: 10,000 USP UNITS 1 IV
     Route: 042
     Dates: start: 20080104, end: 20080104
  3. HEPARIN SODIUM [Suspect]
     Indication: ANTICOAGULANT THERAPY
     Dosage: 10,000 USP UNITS 1 IV
     Route: 042
     Dates: start: 20080118, end: 20080118
  4. HEPARIN SODIUM [Suspect]
     Indication: PHOTOPHERESIS
     Dosage: 10,000 USP UNITS 1 IV
     Route: 042
     Dates: start: 20080118, end: 20080118

REACTIONS (2)
  - HYPOTENSION [None]
  - TACHYCARDIA [None]
